FAERS Safety Report 14714592 (Version 2)
Quarter: 2019Q2

REPORT INFORMATION
  Report Type: Spontaneous
  Country: US (occurrence: US)
  Receive Date: 20180404
  Receipt Date: 20190508
  Transmission Date: 20190711
  Serious: Yes (Hospitalization)
  Sender: FDA-Public Use
  Company Number: US-PFIZER INC-2017326301

PATIENT
  Age: 56 Year
  Sex: Female
  Weight: 56.69 kg

DRUGS (48)
  1. BUMETANIDE. [Concomitant]
     Active Substance: BUMETANIDE
     Indication: JOINT SWELLING
     Dosage: 4 MG, 1X/DAY (2 TABLETS BY MOUTH DAILY)
     Route: 048
     Dates: start: 201408, end: 20180315
  2. PROMETHAZINE [Concomitant]
     Active Substance: PROMETHAZINE\PROMETHAZINE HYDROCHLORIDE
     Indication: NAUSEA
     Dosage: 25 MG, AS NEEDED (EVERY 6 HOURS)
     Route: 048
  3. PROLIA [Concomitant]
     Active Substance: DENOSUMAB
     Indication: BONE DENSITY ABNORMAL
     Dosage: 60 MG, UNK (ONCE EVERY 6 MONTHS)
     Dates: start: 2013
  4. PRENATAL VITAMINS /02014401/ [Concomitant]
     Active Substance: VITAMINS
     Indication: ONYCHOCLASIS
  5. PROVIGIL [Concomitant]
     Active Substance: MODAFINIL
     Indication: CHRONIC FATIGUE SYNDROME
     Dosage: 200 MG, DAILY (2 TABLETS TAKEN BY MOUTH DAILY)
     Route: 048
     Dates: start: 2010
  6. PREDNISONE. [Concomitant]
     Active Substance: PREDNISONE
     Indication: IMMUNOSUPPRESSANT DRUG THERAPY
     Dosage: 10 MG, DAILY
     Route: 048
     Dates: start: 200908
  7. SODIUM BICARBONATE. [Concomitant]
     Active Substance: SODIUM BICARBONATE
     Indication: BLOOD POTASSIUM
     Dosage: 650 MG, DAILY
     Route: 048
     Dates: start: 2015
  8. FLOVENT [Concomitant]
     Active Substance: FLUTICASONE PROPIONATE
     Dosage: 2 PUFFS, 2X/DAY
  9. FLUCONAZOLE. [Concomitant]
     Active Substance: FLUCONAZOLE
     Indication: IMMUNE SYSTEM DISORDER
     Dosage: 400 MG, DAILY (2 TABLETS TAKEN BY MOUTH DAILY)
     Route: 048
     Dates: start: 200908
  10. VITAMIN B COMPLEX [Concomitant]
     Active Substance: CYANOCOBALAMIN\DEXPANTHENOL\NIACINAMIDE\PYRIDOXINE HYDROCHLORIDE\RIBOFLAVIN 5^-PHOSPHATE SODIUM\THIAMINE HYDROCHLORIDE\VITAMIN B COMPLEX
     Indication: BONE DISORDER
     Dosage: 500 MG, DAILY(2 TABLETS TAKEN BY MOUTH DAILY)
     Route: 048
     Dates: start: 200908
  11. LYRICA [Suspect]
     Active Substance: PREGABALIN
     Indication: PAIN
     Dosage: 100 MG, 3X/DAY
     Route: 048
     Dates: start: 2011
  12. LIDODERM [Concomitant]
     Active Substance: LIDOCAINE
     Indication: PAIN
  13. OMEPRAZOLE. [Concomitant]
     Active Substance: OMEPRAZOLE
     Indication: GASTROOESOPHAGEAL REFLUX DISEASE
     Dosage: 40 MG, DAILY
     Route: 048
     Dates: start: 200908, end: 20180315
  14. ONDANSETRON [Concomitant]
     Active Substance: ONDANSETRON
     Indication: NAUSEA
     Dosage: 8 MG, AS NEEDED (EVERY 8 HOURS)
     Route: 048
  15. CARVEDILOL. [Concomitant]
     Active Substance: CARVEDILOL
     Indication: HEART RATE DECREASED
     Dosage: UNK
  16. ALBUTEROL. [Concomitant]
     Active Substance: ALBUTEROL
     Indication: WHEEZING
  17. ELIQUIS [Concomitant]
     Active Substance: APIXABAN
     Indication: ANTICOAGULANT THERAPY
     Dosage: 2.5 MG, 2X/DAY (1 TABLET AT 7:00 AM AND 1 TABLET AT 7:00 PM)
     Dates: end: 201707
  18. LYRICA [Suspect]
     Active Substance: PREGABALIN
     Indication: HERPES ZOSTER
  19. PROGRAF [Concomitant]
     Active Substance: TACROLIMUS\TACROLIMUS ANHYDROUS
     Indication: IMMUNOSUPPRESSANT DRUG THERAPY
     Dosage: 0.5 MG, 1X/DAY (1 CAPSULE BY MOUTH AT 7:00 AM)
     Route: 048
     Dates: start: 200908
  20. AZITHROMYCIN ANHYDROUS. [Concomitant]
     Active Substance: AZITHROMYCIN ANHYDROUS
     Indication: BRONCHITIS
     Dosage: 500 MG, UNK (ON MONDAY, WEDNESDAY AND FRIDAY MORNINGS EVERY WEEK)
     Route: 048
     Dates: start: 2015
  21. CARVEDILOL. [Concomitant]
     Active Substance: CARVEDILOL
     Indication: HYPERTENSION
     Dosage: 6.25 MG, 2X/DAY (1 TABLET AT MOUTH AT 7:00 AM AND 7:00 PM)
     Route: 048
     Dates: start: 2015, end: 20180315
  22. PROLIA [Concomitant]
     Active Substance: DENOSUMAB
     Indication: BONE DISORDER
  23. PROBIOTIC [Concomitant]
     Active Substance: PROBIOTICS NOS
     Indication: DYSPEPSIA
     Dosage: 1 TABLET, 1X/DAY (AT 7:00 AM)
  24. PRENATAL VITAMINS /02014401/ [Concomitant]
     Active Substance: VITAMINS
     Indication: ALOPECIA
     Dosage: 1 TABLET 1X/DAY (AT 7:00 AM)
  25. ACYCLOVIR. [Concomitant]
     Active Substance: ACYCLOVIR
     Indication: IMMUNE SYSTEM DISORDER
     Dosage: ()1000 MG, DAILY(2 TABLETS TAKEN BY MOUTH DAILY)
     Route: 048
     Dates: start: 200908
  26. ENOXAPARIN SODIUM. [Concomitant]
     Active Substance: ENOXAPARIN SODIUM
     Indication: THROMBOSIS
     Dosage: 60 MG, UNK (1 INJECTION GOES INTO THE STOMACH DAILY)
     Dates: start: 201711
  27. DIFLUCAN [Concomitant]
     Active Substance: FLUCONAZOLE
     Indication: INFECTION
     Dosage: 400 MG, 1X/DAY (2 TABLETS BY MOUTH AT 7:00 PM)
     Route: 048
     Dates: start: 200908
  28. VALACYCLOVIR [Concomitant]
     Active Substance: VALACYCLOVIR HYDROCHLORIDE
     Dosage: 1 TABLET, 2X/DAY (AT 7:00 AM AND 7:00 PM)
     Route: 048
  29. BABY ASPIRIN [Concomitant]
     Active Substance: ASPIRIN
     Dosage: 81 MG, 1X/DAY (1 TABLET AT 7:00 AM)
  30. FLOVENT [Concomitant]
     Active Substance: FLUTICASONE PROPIONATE
     Dosage: UNK, AS NEEDED
  31. PRENATAL VITAMINS /02014401/ [Concomitant]
     Active Substance: VITAMINS
     Indication: DRY SKIN
  32. TRUBIOTICS [Concomitant]
     Active Substance: PROBIOTICS NOS
     Indication: DYSPEPSIA
     Dosage: 1 DF, DAILY
     Route: 048
     Dates: start: 200908
  33. ALBUTEROL. [Concomitant]
     Active Substance: ALBUTEROL
     Indication: DYSPNOEA
     Dosage: UNK, AS NEEDED (EVERY 4 HOURS)
  34. LYSINE [Concomitant]
     Active Substance: LYSINE
     Indication: IMMUNE SYSTEM DISORDER
     Dosage: 1000 MG, 1X/DAY (1 TABLET DAILY AT 7:00 PM)
     Route: 048
     Dates: start: 200908
  35. CENTRUM WOMEN [Concomitant]
     Active Substance: VITAMINS
     Indication: VITAMIN SUPPLEMENTATION
     Dosage: 1 DF, DAILY
     Route: 048
     Dates: start: 200908
  36. VITAMIN B12 [Concomitant]
     Active Substance: CYANOCOBALAMIN
     Indication: METABOLIC DISORDER
     Dosage: 2500 UG, DAILY
     Route: 048
     Dates: start: 200908
  37. LYRICA [Suspect]
     Active Substance: PREGABALIN
     Indication: NERVE INJURY
     Dosage: 200 MG, 3X/DAY
     Dates: start: 2014
  38. LYRICA [Suspect]
     Active Substance: PREGABALIN
     Indication: NEURALGIA
  39. BUMETANIDE. [Concomitant]
     Active Substance: BUMETANIDE
     Indication: PERIPHERAL SWELLING
  40. LIDODERM [Concomitant]
     Active Substance: LIDOCAINE
     Indication: FRACTURE PAIN
     Dosage: UNK, AS NEEDED (APPLY 1-2 PATCHES 12 HRS ON AND 12 HRS OFF)
     Route: 061
     Dates: start: 2009
  41. SODIUM CHLORIDE. [Concomitant]
     Active Substance: SODIUM CHLORIDE
     Dosage: 4 ML, 2X/DAY
  42. BIOTIN [Concomitant]
     Active Substance: BIOTIN
     Dosage: 10000 UG, 2X/DAY (1 TABLET DAILY AT 7:00 AM AND 7: 00 PM)
  43. VITAMIN D3 [Concomitant]
     Active Substance: CHOLECALCIFEROL
     Dosage: 1000 IU, DAILY
     Route: 048
     Dates: start: 2015
  44. METHADONE [Concomitant]
     Active Substance: METHADONE HYDROCHLORIDE
     Indication: PAIN
     Dosage: 30 MG, 2X/DAY
     Route: 048
  45. CELLCEPT [Concomitant]
     Active Substance: MYCOPHENOLATE MOFETIL\MYCOPHENOLATE MOFETIL HYDROCHLORIDE
     Indication: IMMUNOSUPPRESSANT DRUG THERAPY
     Dosage: 500 MG, DAILY
     Route: 048
     Dates: start: 200908
  46. MONTELUKAST [Concomitant]
     Active Substance: MONTELUKAST SODIUM
     Indication: BRONCHITIS
     Dosage: 10 MG, 1X/DAY (AT 7:00 PM)
     Route: 048
     Dates: start: 2015
  47. SUPER B COMPLEX [Concomitant]
     Active Substance: CYANOCOBALAMIN\DEXPANTHENOL\NIACINAMIDE\PYRIDOXINE HYDROCHLORIDE\RIBOFLAVIN 5^-PHOSPHATE SODIUM\THIAMINE HYDROCHLORIDE\VITAMIN B COMPLEX
     Indication: BONE DISORDER
     Dosage: 500 MG, 1X/DAY (2 TABLETS DAILY AT 7:00 PM)
  48. OSCAL [Concomitant]
     Active Substance: CALCIUM CARBONATE
     Indication: BONE DISORDER
     Dosage: 1200 MG, 1X/DAY (2 TABLETS TAKEN BY MOUTH DAILY)
     Route: 048
     Dates: start: 200908

REACTIONS (4)
  - Bacteraemia [Recovered/Resolved]
  - Parainfluenzae virus infection [Recovered/Resolved]
  - Thrombosis [Not Recovered/Not Resolved]
  - Dyspnoea [Not Recovered/Not Resolved]

NARRATIVE: CASE EVENT DATE: 2015
